FAERS Safety Report 18139216 (Version 2)
Quarter: 2020Q3

REPORT INFORMATION
  Report Type: Report from Study
  Country: IT (occurrence: IT)
  Receive Date: 20200812
  Receipt Date: 20200828
  Transmission Date: 20201103
  Serious: Yes (Hospitalization, Other)
  Sender: FDA-Public Use
  Company Number: IT-AMGEN-ITANI2020126997

PATIENT
  Age: 78 Year
  Sex: Male
  Weight: 69 kg

DRUGS (4)
  1. PANITUMUMAB [Suspect]
     Active Substance: PANITUMUMAB
     Indication: COLORECTAL CANCER METASTATIC
     Dosage: 330 MILLIGRAM, Q2WK
     Route: 042
     Dates: start: 20200309, end: 20200406
  2. FOLFOX [Concomitant]
     Active Substance: FLUOROURACIL\LEUCOVORIN CALCIUM\OXALIPLATIN
     Dosage: UNK, Q2WK
     Route: 042
     Dates: start: 20191118
  3. PANITUMUMAB [Suspect]
     Active Substance: PANITUMUMAB
     Dosage: 300 MILLIGRAM, Q2WK
     Route: 042
     Dates: start: 20200427
  4. MINOCIN [Concomitant]
     Active Substance: MINOCYCLINE HYDROCHLORIDE
     Dosage: UNK, QD
     Route: 048
     Dates: start: 20191118

REACTIONS (3)
  - Osteolysis [Not Recovered/Not Resolved]
  - Atrial fibrillation [Not Recovered/Not Resolved]
  - Craniocerebral injury [Recovered/Resolved]

NARRATIVE: CASE EVENT DATE: 20200623
